FAERS Safety Report 8786034 (Version 1)
Quarter: 2012Q4

REPORT INFORMATION
  Report Type: Report from Study
  Country: US (occurrence: US)
  Receive Date: 20120914
  Receipt Date: 20120914
  Transmission Date: 20130627
  Serious: No
  Sender: FDA-Public Use
  Company Number: US-VERTEX PHARMACEUTICAL INC.-AE-2012-010942

PATIENT
  Sex: Male
  Weight: 73.5 kg

DRUGS (6)
  1. INCIVEK [Suspect]
     Indication: HEPATITIS C
     Route: 048
     Dates: start: 20120510
  2. RIBAPAK [Concomitant]
     Indication: HEPATITIS C
     Route: 048
     Dates: start: 20120510
  3. PEGASYS [Concomitant]
     Indication: HEPATITIS C
     Route: 058
     Dates: start: 20120510
  4. ZOLOFT [Concomitant]
     Route: 048
  5. BENAZEPRIL HYDROCHLORIDE [Concomitant]
     Route: 048
  6. TRAMADOL HYDROCHLORIDE [Concomitant]

REACTIONS (9)
  - Photosensitivity reaction [Unknown]
  - Temperature intolerance [Unknown]
  - Sinusitis [Unknown]
  - Irritability [Unknown]
  - Anger [Unknown]
  - Rash generalised [Unknown]
  - Diarrhoea [Unknown]
  - Nausea [Unknown]
  - Vomiting [Unknown]
